FAERS Safety Report 9036015 (Version 1)
Quarter: 2013Q1

REPORT INFORMATION
  Report Type: Report from Study
  Country: US (occurrence: US)
  Receive Date: 20130129
  Receipt Date: 20130129
  Transmission Date: 20140127
  Serious: No
  Sender: FDA-Public Use
  Company Number: US-ABBOTT-12P-163-0905013-00

PATIENT
  Age: 64 Year
  Sex: Female

DRUGS (11)
  1. HUMIRA 40 MG/0.8 ML PEN [Suspect]
     Indication: PSORIASIS
     Dates: start: 20120124
  2. HUMIRA 40 MG/0.8 ML PEN [Suspect]
     Indication: PSORIATIC ARTHROPATHY
  3. PROPRANOLOL LA [Concomitant]
     Indication: TREMOR
  4. METHYLIN ER [Concomitant]
     Indication: ATTENTION DEFICIT/HYPERACTIVITY DISORDER
  5. SYMBICORT [Concomitant]
     Indication: ASTHMA
     Dosage: 80/4.5 AT BEDTIME
  6. SINGULAIR [Concomitant]
     Indication: ASTHMA
     Dosage: AT BEDTIME
  7. CITRACAL CALCIUM [Concomitant]
     Indication: PRODUCT USED FOR UNKNOWN INDICATION
     Dosage: DAILY
  8. ASPIRIN [Concomitant]
     Indication: PRODUCT USED FOR UNKNOWN INDICATION
     Dosage: DAILY
  9. MULTIVITAMIN [Concomitant]
     Indication: PRODUCT USED FOR UNKNOWN INDICATION
     Dosage: DAILY
  10. TURMERIC [Concomitant]
     Indication: PSORIASIS
     Dosage: DAILY
  11. FISH OIL [Concomitant]
     Indication: BLOOD CHOLESTEROL

REACTIONS (2)
  - Nasopharyngitis [Recovering/Resolving]
  - Cough [Recovering/Resolving]
